FAERS Safety Report 5779217-X (Version None)
Quarter: 2008Q2

REPORT INFORMATION
  Report Type: 
  Country: None (occurrence: None)
  Receive Date: 20080619
  Receipt Date: 20080616
  Transmission Date: 20081010
  Serious: Yes (Hospitalization)
  Sender: FDA-Public Use
  Company Number: US-ASTRAZENECA-2008UW12115

PATIENT
  Age: 15 Year
  Sex: Female

DRUGS (6)
  1. SEROQUEL XR [Suspect]
     Indication: BIPOLAR DISORDER
     Route: 048
     Dates: start: 20080326
  2. LITHIUM CARBONATE [Concomitant]
  3. ZOLOFT [Concomitant]
  4. ABILIFY [Concomitant]
  5. BENADRYL [Concomitant]
  6. DITROPAN [Concomitant]

REACTIONS (4)
  - BRADYCARDIA [None]
  - DIZZINESS [None]
  - HYPOTENSION [None]
  - SYNCOPE [None]
